FAERS Safety Report 23631279 (Version 1)
Quarter: 2024Q1

REPORT INFORMATION
  Report Type: Report from Study
  Country: DE (occurrence: DE)
  Receive Date: 20240314
  Receipt Date: 20240314
  Transmission Date: 20240409
  Serious: Yes (Hospitalization, Other)
  Sender: FDA-Public Use
  Company Number: DE-CELLTRION INC.-2024DE006032

PATIENT

DRUGS (11)
  1. BEVACIZUMAB [Suspect]
     Active Substance: BEVACIZUMAB
     Indication: Non-small cell lung cancer
     Dosage: 500 MG/KG, ON 28/SEP/2020, LAST DOSE TAKEN PRIOR TO EVENT. ON 19/OCT/2020, HE RECEIVED THE MOST RECE
     Route: 042
     Dates: start: 20200928
  2. ATEZOLIZUMAB [Suspect]
     Active Substance: ATEZOLIZUMAB
     Indication: Non-small cell lung cancer
     Dosage: 1200 MG, ON 28/SEP/2020, LAST DOSE TAKEN PRIOR TO EVENT. ON 19/OCT/2020, HE RECEIVED THE MOST RECENT
     Route: 042
     Dates: start: 20200928
  3. CARBOPLATIN [Suspect]
     Active Substance: CARBOPLATIN
     Indication: Non-small cell lung cancer
     Dosage: 520 MG/MIN*ML, ON 29/SEP/2020, LAST DOSE TAKEN PRIOR TO EVENT. ON 20/OCT/2020, HE RECEIVED THE MOST
     Route: 042
     Dates: start: 20200928
  4. PACLITAXEL [Suspect]
     Active Substance: PACLITAXEL
     Indication: Non-small cell lung cancer
     Dosage: 324 MG/M2, ON 29/SEP/2020, LAST DOSE TAKEN PRIOR TO EVENT. ON 20/OCT/2020, HE RECEIVED THE MOST RECE
     Route: 042
     Dates: start: 20200928
  5. DEXAMETHASONE [Concomitant]
     Active Substance: DEXAMETHASONE
     Dosage: 20 MG
     Route: 042
     Dates: start: 20200929
  6. GRANISETRON [Concomitant]
     Active Substance: GRANISETRON
     Dosage: 1 MG
     Route: 042
     Dates: start: 20201005
  7. APREPITANT [Concomitant]
     Active Substance: APREPITANT
     Dosage: 125.8 MG
     Route: 048
     Dates: start: 20201005
  8. CLEMASTINE [Concomitant]
     Active Substance: CLEMASTINE
     Dosage: 2 MG
     Route: 042
     Dates: start: 20200928
  9. DECODERM [FLUPREDNIDENE ACETATE] [Concomitant]
     Dosage: UNK
     Route: 062
     Dates: start: 20201005
  10. PALONOSETRON [Concomitant]
     Active Substance: PALONOSETRON
     Dosage: 250 MICROGRAM/5ML
     Route: 042
     Dates: start: 20200929
  11. RIZATRIPTAN [Concomitant]
     Active Substance: RIZATRIPTAN
     Dosage: 10 MG
     Route: 048
     Dates: start: 20201005

REACTIONS (5)
  - Migraine [Unknown]
  - Anal abscess [Unknown]
  - Headache [Not Recovered/Not Resolved]
  - Fatigue [Not Recovered/Not Resolved]
  - Overdose [Unknown]

NARRATIVE: CASE EVENT DATE: 20200929
